FAERS Safety Report 24796867 (Version 1)
Quarter: 2025Q1

REPORT INFORMATION
  Report Type: Spontaneous
  Country: CN (occurrence: CN)
  Receive Date: 20250101
  Receipt Date: 20250101
  Transmission Date: 20250408
  Serious: Yes (Hospitalization)
  Sender: NOVARTIS
  Company Number: CN-002147023-NVSC2024CN245472

PATIENT
  Age: 72 Year
  Sex: Male
  Weight: 60 kg

DRUGS (1)
  1. DIOVAN [Suspect]
     Active Substance: VALSARTAN
     Indication: Hypertension
     Dosage: 80 MG, QD
     Route: 048
     Dates: start: 20241001, end: 20241114

REACTIONS (6)
  - Gastrointestinal haemorrhage [Recovering/Resolving]
  - Melaena [Recovering/Resolving]
  - Chest discomfort [Recovering/Resolving]
  - Nausea [Recovering/Resolving]
  - Dizziness [Recovering/Resolving]
  - Blood pressure increased [Unknown]

NARRATIVE: CASE EVENT DATE: 20241114
